FAERS Safety Report 10690499 (Version 1)
Quarter: 2015Q1

REPORT INFORMATION
  Report Type: Spontaneous
  Country: CH (occurrence: None)
  Receive Date: 20150102
  Receipt Date: 20150102
  Transmission Date: 20150720
  Serious: Yes (Death)
  Sender: FDA-Public Use
  Company Number: CH-ZYDUS-006122

PATIENT
  Age: 75 Year

DRUGS (2)
  1. HALOPERIDOL (HALOPERIDOL) (HALOPERIDOL) [Suspect]
     Active Substance: HALOPERIDOL
  2. LEVOMEPROMAZINE (LEVOMEPRAOMAZINE) [Suspect]
     Active Substance: LEVOMEPROMAZINE

REACTIONS (2)
  - Dry mouth [None]
  - Parotitis [None]
